FAERS Safety Report 5523020-2 (Version None)
Quarter: 2007Q4

REPORT INFORMATION
  Report Type: 
  Country: None (occurrence: None)
  Receive Date: 20071116
  Receipt Date: 20071116
  Transmission Date: 20080405
  Serious: No
  Sender: FDA-Public Use
  Company Number: None

PATIENT
  Age: 20 Year
  Sex: Female
  Weight: 72.5755 kg

DRUGS (1)
  1. BUDEPRION SR   150MG  TEVA [Suspect]
     Indication: DEPRESSION
     Dosage: 150MG  2 TIMES A DAY  PO
     Route: 048
     Dates: start: 20070731, end: 20070805

REACTIONS (4)
  - ANGER [None]
  - DEPRESSION [None]
  - EMOTIONAL DISORDER [None]
  - PHARMACEUTICAL PRODUCT COMPLAINT [None]
